FAERS Safety Report 12894035 (Version 1)
Quarter: 2016Q4

REPORT INFORMATION
  Report Type: Spontaneous
  Country: US (occurrence: US)
  Receive Date: 20161028
  Receipt Date: 20161028
  Transmission Date: 20170207
  Serious: No
  Sender: FDA-Public Use
  Company Number: US-PFIZER INC-2016502311

PATIENT
  Age: 46 Year
  Sex: Female

DRUGS (10)
  1. PAXIL [Suspect]
     Active Substance: PAROXETINE HYDROCHLORIDE
  2. HUMIRA [Suspect]
     Active Substance: ADALIMUMAB
  3. TALWIN [Suspect]
     Active Substance: PENTAZOCINE LACTATE
  4. LESCOL [Suspect]
     Active Substance: FLUVASTATIN SODIUM
  5. ZOCOR [Suspect]
     Active Substance: SIMVASTATIN
  6. ZETIA [Suspect]
     Active Substance: EZETIMIBE
  7. EFFEXOR XR [Suspect]
     Active Substance: VENLAFAXINE HYDROCHLORIDE
  8. LIPITOR [Suspect]
     Active Substance: ATORVASTATIN CALCIUM
  9. PLAQUENIL [Suspect]
     Active Substance: HYDROXYCHLOROQUINE SULFATE
  10. VICTOZA [Suspect]
     Active Substance: LIRAGLUTIDE

REACTIONS (1)
  - Drug hypersensitivity [Unknown]
